FAERS Safety Report 8441010 (Version 3)
Quarter: 2013Q4

REPORT INFORMATION
  Report Type: Spontaneous
  Country: JP (occurrence: None)
  Receive Date: 20120223
  Receipt Date: 20131231
  Transmission Date: 20140711
  Serious: Yes (Hospitalization, Other)
  Sender: FDA-Public Use
  Company Number: JP-20120006

PATIENT
  Age: 74 Year
  Sex: Male

DRUGS (9)
  1. LIPIODOL ULTRA FLUIDE (ETHIODIZED OIL) [Suspect]
     Indication: THERAPEUTIC EMBOLISATION
     Dosage: 2 ML (2 ML, 1 IN 1 D), INTRA-ARTERIAL
     Route: 013
     Dates: start: 20101116, end: 20101116
  2. EPIRUBICIN HYDROCHLORIDE [Suspect]
     Indication: THERAPEUTIC EMBOLISATION
     Dosage: 40 MG (20 MG, 1 IN 1 D), INTRA-ARTERIAL
     Route: 013
     Dates: start: 20101116, end: 20101116
  3. GELATIN (GELATIN) [Suspect]
     Indication: THERAPEUTIC EMBOLISATION
     Dosage: 1 IN 1 D), INTRA-ARTERIAL
     Route: 013
     Dates: start: 20101116, end: 20101116
  4. CLOSTRIDIUM BUTYRICUM SPORES STRAIN M-55 [Concomitant]
     Dosage: 3 DOSAGE FORMS (3 DOSAGE FORMS, 1 IN 1 D), ORAL
     Route: 048
  5. TRIAZOLAM [Concomitant]
     Dosage: 0.5 MG (0.5 MG, 1 IN 1 D), ORAL
     Route: 048
  6. BISOPROLOL FUMARATE [Concomitant]
     Dosage: 2.5 MG (2.5 MG, 1 IN 1 D), ORAL
     Route: 048
  7. FAMOSTADGINE-D (FAMOTIDINE) [Concomitant]
  8. VOLTMIE TABLETS (BIODIASTASE ETC) [Concomitant]
  9. KELGE (TERBINAFINE HYDROCHLORIDE) [Concomitant]

REACTIONS (9)
  - Liver abscess [None]
  - Off label use [None]
  - Gastric ulcer haemorrhage [None]
  - Clostridial infection [None]
  - Disseminated intravascular coagulation [None]
  - Continuous haemodiafiltration [None]
  - Hepatic failure [None]
  - Renal failure [None]
  - Abscess rupture [None]
